FAERS Safety Report 13846971 (Version 1)
Quarter: 2017Q3

REPORT INFORMATION
  Report Type: Spontaneous
  Country: US (occurrence: US)
  Receive Date: 20170808
  Receipt Date: 20170808
  Transmission Date: 20171127
  Serious: No
  Sender: FDA-Public Use
  Company Number: US-SA-2017SA134355

PATIENT
  Age: 18 Month
  Sex: Male

DRUGS (1)
  1. XYZAL ALLERGY 24HR [Suspect]
     Active Substance: LEVOCETIRIZINE DIHYDROCHLORIDE
     Dosage: TAKEN APPROX 3 TABLETS
     Route: 048
     Dates: start: 20170718, end: 20170718

REACTIONS (1)
  - Accidental exposure to product [Unknown]
